FAERS Safety Report 4697718-2 (Version None)
Quarter: 2005Q2

REPORT INFORMATION
  Report Type: 
  Country: None (occurrence: None)
  Receive Date: 20050621
  Receipt Date: 20050621
  Transmission Date: 20051028
  Serious: Yes (Hospitalization)
  Sender: FDA-Public Use
  Company Number: None

PATIENT
  Age: 66 Year
  Sex: Female
  Weight: 94.5 kg

DRUGS (4)
  1. DOXORUBICIN [Suspect]
     Indication: ADENOCARCINOMA
     Dosage: 123 MG IVP
     Route: 042
     Dates: start: 20050120
  2. DOXORUBICIN [Suspect]
     Indication: METASTASIS
     Dosage: 123 MG IVP
     Route: 042
     Dates: start: 20050120
  3. CYCLOPHOSPHAMIDE [Suspect]
     Indication: ADENOCARCINOMA
     Dosage: 1233 MG IVPB
     Route: 040
     Dates: start: 20050120
  4. CYCLOPHOSPHAMIDE [Suspect]
     Indication: METASTASIS
     Dosage: 1233 MG IVPB
     Route: 040
     Dates: start: 20050120

REACTIONS (5)
  - LOCAL SWELLING [None]
  - NEUTROPENIA [None]
  - ONYCHOMYCOSIS [None]
  - PAIN IN EXTREMITY [None]
  - WOUND DRAINAGE [None]
